FAERS Safety Report 7540620-9 (Version None)
Quarter: 2011Q2

REPORT INFORMATION
  Report Type: 
  Country: None (occurrence: None)
  Receive Date: 20110610
  Receipt Date: 20110530
  Transmission Date: 20111010
  Serious: Yes (Other)
  Sender: FDA-Public Use
  Company Number: AU-JNJFOC-20110501155

PATIENT
  Sex: Female

DRUGS (4)
  1. STELARA [Suspect]
     Route: 058
     Dates: start: 20110505
  2. STELARA [Suspect]
     Route: 058
     Dates: start: 20110507
  3. METHOTREXATE [Concomitant]
  4. STELARA [Suspect]
     Indication: PSORIASIS
     Route: 058
     Dates: start: 20110407

REACTIONS (9)
  - UPPER RESPIRATORY TRACT INFECTION [None]
  - FATIGUE [None]
  - NAUSEA [None]
  - ARTHRALGIA [None]
  - HEADACHE [None]
  - URINARY TRACT INFECTION [None]
  - NASOPHARYNGITIS [None]
  - SYNCOPE [None]
  - DRUG INEFFECTIVE [None]
